FAERS Safety Report 25151094 (Version 1)
Quarter: 2025Q2

REPORT INFORMATION
  Report Type: Spontaneous
  Country: US (occurrence: US)
  Receive Date: 20250402
  Receipt Date: 20250402
  Transmission Date: 20250717
  Serious: Yes (Hospitalization, Other)
  Sender: ALKERMES
  Company Number: US-ALKERMES INC.-ALK-2025-000814

PATIENT
  Age: 3 Decade
  Sex: Male

DRUGS (1)
  1. VIVITROL [Suspect]
     Active Substance: NALTREXONE
     Indication: Drug dependence
     Route: 030
     Dates: start: 202409, end: 202409

REACTIONS (2)
  - Renal failure [Recovered/Resolved]
  - Drug withdrawal syndrome [Recovered/Resolved]

NARRATIVE: CASE EVENT DATE: 20240901
